FAERS Safety Report 7536504-2 (Version None)
Quarter: 2011Q2

REPORT INFORMATION
  Report Type: 
  Country: None (occurrence: None)
  Receive Date: 20110609
  Receipt Date: 20110531
  Transmission Date: 20111010
  Serious: Yes (Hospitalization)
  Sender: FDA-Public Use
  Company Number: US-ASTRAZENECA-2010SE48550

PATIENT
  Age: 53 Year
  Sex: Male

DRUGS (5)
  1. CRESTOR [Suspect]
     Route: 048
  2. VALIUM [Concomitant]
  3. PLAVIX [Concomitant]
  4. AVAPRO [Concomitant]
  5. ZETIA [Concomitant]

REACTIONS (4)
  - DYSURIA [None]
  - STENT PLACEMENT [None]
  - ARTERIAL OCCLUSIVE DISEASE [None]
  - PANIC ATTACK [None]
